FAERS Safety Report 9193903 (Version 2)
Quarter: 2013Q2

REPORT INFORMATION
  Report Type: Spontaneous
  Country: US (occurrence: US)
  Receive Date: 20130327
  Receipt Date: 20130506
  Transmission Date: 20140414
  Serious: Yes (Hospitalization, Other)
  Sender: FDA-Public Use
  Company Number: US-PFIZER INC-2013095412

PATIENT
  Age: 86 Year
  Sex: Female
  Weight: 59 kg

DRUGS (4)
  1. XALATAN [Suspect]
     Indication: GLAUCOMA
     Dosage: 1 GTT IN EACH EYE, DAILY
     Route: 047
     Dates: start: 2011
  2. PREDNISONE [Suspect]
     Indication: MUSCULOSKELETAL DISCOMFORT
     Dosage: 10 MG, 1X/DAY
  3. PREDNISONE [Suspect]
     Indication: HEAD DISCOMFORT
  4. FUROSEMIDE [Concomitant]
     Indication: FLUID RETENTION
     Dosage: 20 MG, DAILY

REACTIONS (9)
  - Pneumonia [Unknown]
  - Influenza [Unknown]
  - Dehydration [Unknown]
  - Pharyngeal oedema [Unknown]
  - Dysphagia [Unknown]
  - Aphonia [Unknown]
  - Arthritis [Unknown]
  - Overdose [Unknown]
  - Joint swelling [Unknown]
